FAERS Safety Report 18791758 (Version 1)
Quarter: 2021Q1

REPORT INFORMATION
  Report Type: Spontaneous
  Country: US (occurrence: US)
  Receive Date: 20210127
  Receipt Date: 20210127
  Transmission Date: 20210419
  Serious: Yes (Hospitalization, Other)
  Sender: FDA-Public Use
  Company Number: US-IPCA LABORATORIES LIMITED-IPC-2021-US-000137

PATIENT

DRUGS (2)
  1. LISINOPRIL. [Concomitant]
     Active Substance: LISINOPRIL
     Indication: DEEP VEIN THROMBOSIS
     Dosage: UNK
     Route: 065
  2. WARFARIN [Suspect]
     Active Substance: WARFARIN
     Indication: DEEP VEIN THROMBOSIS
     Dosage: UNK
     Route: 065

REACTIONS (4)
  - Anticoagulation drug level above therapeutic [Recovered/Resolved]
  - Oliguria [Unknown]
  - Anticoagulant-related nephropathy [Unknown]
  - Acute kidney injury [Unknown]
